FAERS Safety Report 10333777 (Version 1)
Quarter: 2014Q3

REPORT INFORMATION
  Report Type: Spontaneous
  Country: US (occurrence: US)
  Receive Date: 20140723
  Receipt Date: 20140723
  Transmission Date: 20150326
  Serious: Yes (Hospitalization, Other)
  Sender: FDA-Public Use
  Company Number: US-AMGEN INC.-USASP2014054971

PATIENT
  Age: 31 Year
  Sex: Female

DRUGS (2)
  1. METHOTREXATE [Concomitant]
     Active Substance: METHOTREXATE
     Dosage: UNK
  2. ENBREL [Suspect]
     Active Substance: ETANERCEPT
     Indication: RHEUMATOID ARTHRITIS
     Dosage: 50 MG, QWK
     Route: 065
     Dates: start: 20070101

REACTIONS (19)
  - Asthma [Not Recovered/Not Resolved]
  - Decreased immune responsiveness [Unknown]
  - Deformity [Not Recovered/Not Resolved]
  - Hip deformity [Not Recovered/Not Resolved]
  - Lung disorder [Not Recovered/Not Resolved]
  - Back disorder [Not Recovered/Not Resolved]
  - Atypical pneumonia [Recovered/Resolved]
  - Pharyngitis streptococcal [Recovered/Resolved]
  - Dysgeusia [Not Recovered/Not Resolved]
  - Mobility decreased [Recovered/Resolved]
  - Respiratory syncytial virus infection [Recovered/Resolved]
  - Injection site mass [Not Recovered/Not Resolved]
  - Spinal pain [Not Recovered/Not Resolved]
  - Pneumonia [Recovered/Resolved]
  - Fatigue [Not Recovered/Not Resolved]
  - Injection site pain [Not Recovered/Not Resolved]
  - Influenza [Recovered/Resolved]
  - Surgery [Recovered/Resolved]
  - Tonsillitis [Recovered/Resolved]

NARRATIVE: CASE EVENT DATE: 2007
